FAERS Safety Report 4316720-3 (Version None)
Quarter: 2004Q1

REPORT INFORMATION
  Report Type: 
  Country: None (occurrence: None)
  Receive Date: 20040311
  Receipt Date: 20040224
  Transmission Date: 20041129
  Serious: Yes (Other)
  Sender: FDA-Public Use
  Company Number: US-JNJFOC-20031001923

PATIENT
  Age: 61 Year
  Sex: Female
  Weight: 113.3993 kg

DRUGS (9)
  1. REMICADE [Suspect]
     Indication: DRUG USE FOR UNKNOWN INDICATION
     Dosage: 1 IN 1 DAY,  INTRAVENOUS
     Route: 042
  2. MOBIC [Concomitant]
  3. PLAQUENIL [Concomitant]
  4. PREDNISONE [Concomitant]
  5. PRILOSEC [Concomitant]
  6. LASIX [Concomitant]
  7. RESTORIL [Concomitant]
  8. NORVASC [Concomitant]
  9. METHOTREXATE [Concomitant]

REACTIONS (4)
  - MALAISE [None]
  - MYALGIA [None]
  - PYREXIA [None]
  - SEPSIS [None]
